FAERS Safety Report 5735785-5 (Version None)
Quarter: 2008Q2

REPORT INFORMATION
  Report Type: 
  Country: None (occurrence: None)
  Receive Date: 20080508
  Receipt Date: 20080508
  Transmission Date: 20081010
  Serious: Yes (Life-Threatening, Disabling)
  Sender: FDA-Public Use
  Company Number: None

PATIENT
  Age: 59 Year
  Sex: Male

DRUGS (1)
  1. TIKOSYN [Suspect]
     Dosage: 500 MCG  Q10H X 4DOSES PO
     Route: 048
     Dates: start: 20071104, end: 20071104

REACTIONS (4)
  - BLOOD MAGNESIUM DECREASED [None]
  - CARDIAC ARREST [None]
  - HYPOKALAEMIA [None]
  - TORSADE DE POINTES [None]
